FAERS Safety Report 25796072 (Version 1)
Quarter: 2025Q3

REPORT INFORMATION
  Report Type: Report from Study
  Country: US (occurrence: US)
  Receive Date: 20250912
  Receipt Date: 20250912
  Transmission Date: 20251021
  Serious: Yes (Other)
  Sender: ALEXION PHARMACEUTICALS
  Company Number: US-ASTRAZENECA-202509USA007773US

PATIENT
  Age: 10 Year
  Sex: Female

DRUGS (1)
  1. STRENSIQ [Suspect]
     Active Substance: ASFOTASE ALFA
     Indication: Phosphorus metabolism disorder
     Dosage: 1 MILLIGRAM/KILOGRAM, SIX TIMES/WEEK
     Route: 065

REACTIONS (16)
  - Talipes [Unknown]
  - Skin disorder [Unknown]
  - Enamel anomaly [Unknown]
  - Mobility decreased [Unknown]
  - Fatigue [Unknown]
  - Asthenia [Unknown]
  - Congenital bowing of long bones [Unknown]
  - Tooth injury [Unknown]
  - Hyperkeratosis [Unknown]
  - Separation anxiety disorder [Unknown]
  - Blood sodium increased [Unknown]
  - Blood potassium increased [Unknown]
  - Vitamin B6 increased [Unknown]
  - C-reactive protein increased [Unknown]
  - Blood lactic acid increased [Unknown]
  - Calcification of muscle [Unknown]

NARRATIVE: CASE EVENT DATE: 20250306
